FAERS Safety Report 4277628-5 (Version None)
Quarter: 2004Q1

REPORT INFORMATION
  Report Type: 
  Country: None (occurrence: None)
  Receive Date: 20040121
  Receipt Date: 20040106
  Transmission Date: 20041129
  Serious: Yes (Death, Life-Threatening, Hospitalization, Disabling)
  Sender: FDA-Public Use
  Company Number: 2004-06529

PATIENT
  Age: 47 Year
  Sex: Male

DRUGS (3)
  1. TENOFOVIR DF [Suspect]
     Dosage: 300 MG QD PO
     Route: 048
     Dates: start: 20030603, end: 20031008
  2. DDI [Suspect]
     Dosage: 250 MG QD PO
     Route: 048
     Dates: start: 20030603, end: 20031008
  3. LOPINAVIR/RITONAVIR [Suspect]
     Dosage: 3 EACH BID PO
     Route: 048
     Dates: start: 20020827, end: 20031008

REACTIONS (8)
  - CHEST PAIN [None]
  - DYSPNOEA [None]
  - FLUID OVERLOAD [None]
  - LACTIC ACIDOSIS [None]
  - MENTAL STATUS CHANGES [None]
  - OEDEMA PERIPHERAL [None]
  - PANCREATITIS [None]
  - RENAL FAILURE ACUTE [None]
